FAERS Safety Report 17520370 (Version 2)
Quarter: 2020Q1

REPORT INFORMATION
  Report Type: Spontaneous
  Country: US (occurrence: US)
  Receive Date: 20200309
  Receipt Date: 20200310
  Transmission Date: 20200409
  Serious: Yes (Hospitalization)
  Sender: FDA-Public Use
  Company Number: US-CELGENEUS-USA-20200300755

PATIENT
  Sex: Male

DRUGS (2)
  1. TILDRAKIZUMAB-ASMN [Concomitant]
     Active Substance: TILDRAKIZUMAB-ASMN
     Indication: PSORIASIS
     Route: 065
  2. OTEZLA [Suspect]
     Active Substance: APREMILAST
     Indication: PSORIASIS
     Route: 048

REACTIONS (4)
  - West Nile viral infection [Recovered/Resolved]
  - Multiple organ dysfunction syndrome [Recovered/Resolved]
  - Coma [Recovered/Resolved]
  - Drug ineffective [Unknown]
